FAERS Safety Report 18119777 (Version 2)
Quarter: 2022Q1

REPORT INFORMATION
  Report Type: Spontaneous
  Country: PL (occurrence: PL)
  Receive Date: 20200806
  Receipt Date: 20220317
  Transmission Date: 20220423
  Serious: Yes (Hospitalization, Other)
  Sender: FDA-Public Use
  Company Number: PL-EMA-DD-20180529-NSINGHEVHP-191834

PATIENT
  Age: 37 Year
  Sex: Female

DRUGS (35)
  1. CEFUROXIME [Suspect]
     Active Substance: CEFUROXIME
     Indication: Cystitis
     Dosage: UNK
     Route: 065
     Dates: start: 20150501
  2. SIMVASTATIN [Suspect]
     Active Substance: SIMVASTATIN
     Indication: Hypercholesterolaemia
     Dosage: 20 MILLIGRAM, EVERY WEEK
     Route: 065
  3. ASCORBIC ACID [Suspect]
     Active Substance: ASCORBIC ACID
     Indication: Product used for unknown indication
     Dosage: UNK
     Route: 048
  4. ASPIRIN [Suspect]
     Active Substance: ASPIRIN
     Indication: Prophylaxis
     Dosage: 75 MILLIGRAM, ONCE A DAY
     Route: 048
     Dates: start: 20150301
  5. ALFACALCIDOL [Suspect]
     Active Substance: ALFACALCIDOL
     Indication: Hyperparathyroidism
     Dosage: 0.25 MICROGRAM, ONCE A DAY
     Route: 065
  6. EPOETIN BETA [Suspect]
     Active Substance: ERYTHROPOIETIN
     Indication: Product used for unknown indication
     Dosage: 2000 INTERNATIONAL UNIT
     Route: 058
  7. EPOETIN BETA [Suspect]
     Active Substance: ERYTHROPOIETIN
     Dosage: UNK, EVERY WEEK (AFTER EACH DIALYSIS)
     Route: 058
  8. EPOETIN BETA [Suspect]
     Active Substance: ERYTHROPOIETIN
     Dosage: 4000 INTERNATIONAL UNIT, EVERY WEEK (AFTER EACH DIALYSIS)
     Route: 058
     Dates: start: 201508
  9. ERYTHROPOIETIN [Suspect]
     Active Substance: ERYTHROPOIETIN
     Indication: Product used for unknown indication
     Dosage: 2000 INTERNATIONAL UNIT, EVERY WEEK
     Route: 058
  10. ERYTHROPOIETIN [Suspect]
     Active Substance: ERYTHROPOIETIN
     Dosage: 4000 INTERNATIONAL UNIT, EVERY WEEK(AFTER EACH DIALYSIS)
     Route: 058
  11. ERYTHROPOIETIN [Suspect]
     Active Substance: ERYTHROPOIETIN
     Dosage: 4000 INTERNATIONAL UNIT, EVERY WEEK
     Route: 058
     Dates: start: 20150801
  12. FOLIC ACID [Suspect]
     Active Substance: FOLIC ACID
     Indication: Product used for unknown indication
     Dosage: 15 MILLIGRAM, ONCE A DAY
     Route: 048
  13. FERINJECT [Suspect]
     Active Substance: FERRIC CARBOXYMALTOSE
     Indication: Product used for unknown indication
     Dosage: 100 MILLIGRAM
     Route: 042
     Dates: start: 201408, end: 201408
  14. FERINJECT [Suspect]
     Active Substance: FERRIC CARBOXYMALTOSE
     Dosage: 50 MILLIGRAM/MILILITER
     Route: 042
  15. FERRIC MALTOL [Suspect]
     Active Substance: FERRIC MALTOL
     Indication: Product used for unknown indication
     Dosage: UNK
     Route: 065
     Dates: start: 201503
  16. HEPARIN [Suspect]
     Active Substance: HEPARIN SODIUM
     Indication: Anticoagulant therapy
     Dosage: UNK
     Route: 065
  17. IRON [Suspect]
     Active Substance: IRON
     Indication: Product used for unknown indication
     Dosage: UNK
     Route: 048
  18. IRON [Suspect]
     Active Substance: IRON
     Dosage: 100 MILLIGRAM, EVERY WEEK
     Route: 048
     Dates: start: 201408
  19. IRON [Suspect]
     Active Substance: IRON
     Indication: Product used for unknown indication
     Dosage: 100 MILLIGRAM, EVERY WEEK
     Route: 042
  20. IRON [Suspect]
     Active Substance: IRON
     Dosage: UNK
     Route: 042
     Dates: start: 201408
  21. LEVOTHYROXINE [Suspect]
     Active Substance: LEVOTHYROXINE
     Indication: Hypothyroidism
     Dosage: 25 MICROGRAM, ONCE A DAY
     Route: 065
  22. LEVOTHYROXINE SODIUM [Suspect]
     Active Substance: LEVOTHYROXINE SODIUM
     Indication: Hypothyroidism
     Dosage: 25 MICROGRAM PER LITRE, ONCE A DAY
     Route: 065
     Dates: start: 201505
  23. LEVOTHYROXINE SODIUM [Suspect]
     Active Substance: LEVOTHYROXINE SODIUM
     Dosage: 25 MICROGRAM, ONCE A DAY
     Route: 065
     Dates: start: 20150501
  24. METHYLDOPA [Suspect]
     Active Substance: METHYLDOPA
     Indication: Hypertension
     Dosage: 1 DOSAGE FORM, ONCE A DAY, (3 X 1 TABLET)
     Route: 065
  25. METHYLDOPA [Suspect]
     Active Substance: METHYLDOPA
     Dosage: 3 DOSAGE FORM, 3 TIMES A DAY
     Route: 065
     Dates: start: 20150301
  26. IRON POLYMALTOSE [Suspect]
     Active Substance: IRON POLYMALTOSE
     Indication: Product used for unknown indication
     Dosage: 100 MILLIGRAM, EVERY WEEK
     Route: 048
     Dates: start: 201408
  27. IRON POLYMALTOSE [Suspect]
     Active Substance: IRON POLYMALTOSE
     Dosage: 100 MILLIGRAM
     Route: 048
     Dates: start: 201503
  28. IRON POLYMALTOSE [Suspect]
     Active Substance: IRON POLYMALTOSE
     Dosage: UNK
     Route: 048
     Dates: start: 201503, end: 201503
  29. SPIRAMYCIN [Suspect]
     Active Substance: SPIRAMYCIN
     Indication: Toxoplasmosis
     Dosage: UNK
     Route: 065
     Dates: start: 20150501
  30. SPIRAMYCIN [Suspect]
     Active Substance: SPIRAMYCIN
     Indication: Cystitis
  31. TORSEMIDE [Suspect]
     Active Substance: TORSEMIDE
     Indication: Hypertension
     Dosage: 2.5 MILLIGRAM, ONCE A DAY
     Route: 065
  32. VENOFER [Suspect]
     Active Substance: IRON SUCROSE
     Indication: Product used for unknown indication
     Dosage: 100 MILLIGRAM
     Route: 042
     Dates: start: 201408
  33. VENOFER [Suspect]
     Active Substance: IRON SUCROSE
     Dosage: UNK
     Route: 048
     Dates: start: 201503
  34. CHOLECALCIFEROL [Concomitant]
     Active Substance: CHOLECALCIFEROL
     Indication: Product used for unknown indication
     Dosage: UNK
     Route: 065
  35. RISEDRONIC ACID [Concomitant]
     Active Substance: RISEDRONIC ACID
     Indication: Product used for unknown indication
     Dosage: UNK
     Route: 065

REACTIONS (13)
  - Oedema peripheral [Unknown]
  - Cystitis [Unknown]
  - Hypothyroidism [Unknown]
  - Haemoglobin decreased [Unknown]
  - Premature rupture of membranes [Unknown]
  - Toxoplasmosis [Unknown]
  - Haematocrit decreased [Unknown]
  - Blood albumin decreased [Unknown]
  - Live birth [Unknown]
  - Premature delivery [Unknown]
  - Contraindicated product administered [Unknown]
  - Maternal exposure during pregnancy [Unknown]
  - Off label use [Unknown]

NARRATIVE: CASE EVENT DATE: 20150501
